FAERS Safety Report 9795582 (Version 2)
Quarter: 2014Q1

REPORT INFORMATION
  Report Type: Spontaneous
  Country: US (occurrence: US)
  Receive Date: 20140103
  Receipt Date: 20140103
  Transmission Date: 20141002
  Serious: Yes (Other)
  Sender: FDA-Public Use
  Company Number: US200708004655

PATIENT
  Age: 57 Year
  Sex: Female

DRUGS (14)
  1. BYETTA PEN DISPOSABLE [Suspect]
     Route: 058
  2. EXENATIDE 10MCG PEN, DISPOSABLE DEVICE [Concomitant]
  3. CARDIZEM [Concomitant]
     Dosage: CAPS
  4. FOLIC ACID [Concomitant]
     Dosage: TABS
  5. REGLAN [Concomitant]
     Dosage: 1/2 TO 1 TABLET
  6. TOPAMAX [Concomitant]
  7. PRAVASTATIN SODIUM [Concomitant]
  8. LIBRAX [Concomitant]
     Dosage: 1DF: 2.5- 5 UNITS NOS?CAPS
  9. BIOTIN [Concomitant]
     Indication: HYPERSENSITIVITY
  10. OXYCONTIN [Concomitant]
  11. PERCOCET [Concomitant]
     Dosage: 10-325 MG 3-4 TIMES A DAY AS NEEDED
  12. PROPRANOLOL [Concomitant]
     Indication: ANXIETY
  13. FLEXERIL [Concomitant]
     Indication: MUSCLE SPASMS
     Dosage: TABS
  14. FLEXERIL [Concomitant]
     Indication: NECK PAIN
     Dosage: TABS

REACTIONS (5)
  - Patella fracture [Unknown]
  - Spinal column injury [Unknown]
  - Neck injury [Unknown]
  - Weight decreased [Unknown]
  - Nausea [Recovered/Resolved]
